FAERS Safety Report 7706724-2 (Version None)
Quarter: 2011Q3

REPORT INFORMATION
  Report Type: 
  Country: None (occurrence: None)
  Receive Date: 20110824
  Receipt Date: 20110818
  Transmission Date: 20111222
  Serious: Yes (Death, Other)
  Sender: FDA-Public Use
  Company Number: KR-GENZYME-FLUD-1001349

PATIENT

DRUGS (15)
  1. FLUDARA [Suspect]
     Indication: BONE MARROW CONDITIONING REGIMEN
     Dosage: 30 MG/M2, ON DAYS -5 TO -1
     Route: 065
  2. FLUCONAZOLE [Concomitant]
     Indication: INFECTION PROPHYLAXIS
     Dosage: UNTIL HOSPITAL DISCHARGE
     Route: 065
  3. TRIMETHOPRIM + SULFAMETHOXAZOLE [Concomitant]
     Indication: INFECTION PROPHYLAXIS
     Dosage: FROM ENGRAFTMENT
     Route: 065
  4. IMMUNE GLOBULIN NOS [Concomitant]
     Indication: PRODUCT USED FOR UNKNOWN INDICATION
     Dosage: WEEKLY FOR FIRST 3 MONTHS
     Route: 042
  5. METHOTREXATE [Concomitant]
     Dosage: 10 MG/M2, ON DAYS 3 AND 6
     Route: 065
  6. IMMUNE GLOBULIN NOS [Concomitant]
     Dosage: MONTHLY
     Route: 042
  7. LEUCOVORIN CALCIUM [Concomitant]
     Indication: PRODUCT USED FOR UNKNOWN INDICATION
     Dosage: 15 MG/M2, QID X 4 DOSES AFTER EACH MTX DOSE
     Route: 065
  8. FLUDARA [Suspect]
     Indication: NEUROBLASTOMA
  9. THYMOGLOBULIN [Suspect]
     Indication: NEUROBLASTOMA
  10. CYCLOSPORINE [Concomitant]
     Indication: PROPHYLAXIS AGAINST GRAFT VERSUS HOST DISEASE
     Dosage: FROM DAY -1 UNTIL TAPERING
     Route: 065
  11. METHOTREXATE [Concomitant]
     Indication: PROPHYLAXIS AGAINST GRAFT VERSUS HOST DISEASE
     Dosage: 15 MG/M2, ON DAY 1
     Route: 065
  12. ACYCLOVIR [Concomitant]
     Indication: INFECTION PROPHYLAXIS
     Dosage: BY DAY 30
     Route: 065
  13. CYCLOPHOSPHAMIDE [Suspect]
     Indication: BONE MARROW CONDITIONING REGIMEN
     Dosage: 60 MG/KG, ON DAYS -7 AND -6
     Route: 065
  14. THYMOGLOBULIN [Suspect]
     Indication: BONE MARROW CONDITIONING REGIMEN
     Dosage: 2.5 MG/KG, ON DAYS -3 TO -1
     Route: 065
  15. CYCLOPHOSPHAMIDE [Suspect]
     Indication: NEUROBLASTOMA

REACTIONS (3)
  - NEUROBLASTOMA [None]
  - ACUTE GRAFT VERSUS HOST DISEASE [None]
  - CHRONIC GRAFT VERSUS HOST DISEASE [None]
